FAERS Safety Report 24709776 (Version 1)
Quarter: 2024Q4

REPORT INFORMATION
  Report Type: Spontaneous
  Country: JP (occurrence: JP)
  Receive Date: 20241209
  Receipt Date: 20241209
  Transmission Date: 20250115
  Serious: Yes (Hospitalization)
  Sender: SANDOZ
  Company Number: JP-asahikaseip-2024-AER-06732

PATIENT
  Age: 67 Year
  Sex: Male

DRUGS (1)
  1. RECLAST [Suspect]
     Active Substance: ZOLEDRONIC ACID
     Indication: Hypercalcaemia
     Dosage: ROUTE OF ADMIN (FREE TEXT): INTRAVENOUS DRIP
     Route: 041

REACTIONS (5)
  - Metastases to pituitary gland [Recovering/Resolving]
  - Diabetes insipidus [Recovering/Resolving]
  - Hypopituitarism [Recovering/Resolving]
  - Metastases to central nervous system [Recovering/Resolving]
  - Off label use [Unknown]
